FAERS Safety Report 23206015 (Version 1)
Quarter: 2023Q4

REPORT INFORMATION
  Report Type: Spontaneous
  Country: IT (occurrence: IT)
  Receive Date: 20231120
  Receipt Date: 20231120
  Transmission Date: 20240110
  Serious: Yes (Other)
  Sender: FDA-Public Use
  Company Number: IT-MYLANLABS-2023M1073149

PATIENT
  Age: 71 Year
  Sex: Female

DRUGS (2)
  1. APIXABAN [Interacting]
     Active Substance: APIXABAN
     Indication: Atrial fibrillation
     Dosage: 10 MG, QD (5 MILLIGRAM, BID)
     Route: 048
  2. CARBAMAZEPINE [Interacting]
     Active Substance: CARBAMAZEPINE
     Indication: Epilepsy
     Dosage: 600 MG, UNKNOWN
     Route: 065

REACTIONS (2)
  - Cerebrovascular accident [Unknown]
  - Labelled drug-drug interaction medication error [Unknown]
